FAERS Safety Report 13123042 (Version 1)
Quarter: 2017Q1

REPORT INFORMATION
  Report Type: Spontaneous
  Country: US (occurrence: US)
  Receive Date: 20170117
  Receipt Date: 20170117
  Transmission Date: 20170428
  Serious: Yes (Other)
  Sender: FDA-Public Use
  Company Number: US-PFIZER INC-2017018156

PATIENT
  Sex: Female

DRUGS (1)
  1. DILANTIN [Suspect]
     Active Substance: PHENYTOIN

REACTIONS (2)
  - Seizure [Unknown]
  - Intentional product use issue [Unknown]
